FAERS Safety Report 4384916-0 (Version None)
Quarter: 2004Q2

REPORT INFORMATION
  Report Type: 
  Country: None (occurrence: None)
  Receive Date: 20040625
  Receipt Date: 20031222
  Transmission Date: 20050107
  Serious: Yes (Other)
  Sender: FDA-Public Use
  Company Number: US-ROCHE-355236

PATIENT
  Age: 53 Year
  Sex: Female
  Weight: 125.6 kg

DRUGS (5)
  1. PEGASYS [Suspect]
     Indication: DRUG USE FOR UNKNOWN INDICATION
     Dosage: 0.5 CC ADMINISTERED.
     Route: 058
     Dates: start: 20031215
  2. PEGASYS [Suspect]
     Route: 058
     Dates: start: 20040109
  3. PEGASYS [Suspect]
     Route: 058
     Dates: start: 20040415, end: 20040525
  4. PEGASYS [Suspect]
     Route: 058
     Dates: start: 20040525
  5. COPEGUS [Suspect]
     Indication: DRUG USE FOR UNKNOWN INDICATION
     Route: 048
     Dates: start: 20031215

REACTIONS (14)
  - ANAEMIA [None]
  - ASTHENIA [None]
  - BREAST MASS [None]
  - CHEST DISCOMFORT [None]
  - COUGH [None]
  - FATIGUE [None]
  - HEPATIC PAIN [None]
  - HYPOTRICHOSIS [None]
  - NEUTROPENIA [None]
  - PLATELET COUNT DECREASED [None]
  - PNEUMONIA [None]
  - PYREXIA [None]
  - RASH [None]
  - SPUTUM DISCOLOURED [None]
